FAERS Safety Report 20644141 (Version 1)
Quarter: 2022Q1

REPORT INFORMATION
  Report Type: Spontaneous
  Country: US (occurrence: None)
  Receive Date: 20220328
  Receipt Date: 20220328
  Transmission Date: 20220423
  Serious: Yes (Life-Threatening, Hospitalization, Other)
  Sender: FDA-Public Use
  Company Number: 2022A129503

PATIENT
  Age: 31150 Day
  Sex: Female
  Weight: 53.1 kg

DRUGS (2)
  1. EVUSHELD [Suspect]
     Active Substance: CILGAVIMAB\TIXAGEVIMAB
     Indication: COVID-19 prophylaxis
     Dosage: 150.0MG ONCE/SINGLE ADMINISTRATION
     Route: 030
     Dates: start: 20220121, end: 20220121
  2. EVUSHELD [Suspect]
     Active Substance: CILGAVIMAB\TIXAGEVIMAB
     Indication: COVID-19 prophylaxis
     Dosage: 150.0MG ONCE/SINGLE ADMINISTRATION
     Route: 030
     Dates: start: 20220317, end: 20220317

REACTIONS (7)
  - Confusional state [Unknown]
  - Speech disorder [Unknown]
  - Pyrexia [Unknown]
  - Tachycardia [Unknown]
  - Renal failure [Unknown]
  - Syncope [Unknown]
  - Sepsis [Unknown]

NARRATIVE: CASE EVENT DATE: 20220319
